FAERS Safety Report 5787562-7 (Version None)
Quarter: 2008Q2

REPORT INFORMATION
  Report Type: 
  Country: None (occurrence: None)
  Receive Date: 20080625
  Receipt Date: 20071022
  Transmission Date: 20081010
  Serious: No
  Sender: FDA-Public Use
  Company Number: US-ASTRAZENECA-2007UW24551

PATIENT
  Age: 81 Year
  Sex: Male
  Weight: 63.5 kg

DRUGS (6)
  1. PULMICORT-100 [Suspect]
     Indication: EMPHYSEMA
     Route: 055
     Dates: start: 20070701
  2. PULMICORT-100 [Suspect]
     Indication: BRONCHITIS
     Route: 055
     Dates: start: 20070701
  3. PULMICORT-100 [Suspect]
     Indication: ASTHMA
     Route: 055
     Dates: start: 20070701
  4. DUONEB [Concomitant]
     Dates: start: 20070301
  5. COMBIVENT [Concomitant]
  6. THEOPHYLLINE [Concomitant]

REACTIONS (3)
  - DYSPNOEA [None]
  - MEDICATION ERROR [None]
  - WHEEZING [None]
